FAERS Safety Report 16820305 (Version 2)
Quarter: 2019Q3

REPORT INFORMATION
  Report Type: Spontaneous
  Country: US (occurrence: US)
  Receive Date: 20190918
  Receipt Date: 20190923
  Transmission Date: 20191005
  Serious: Yes (Death, Life-Threatening, Hospitalization, Other)
  Sender: FDA-Public Use
  Company Number: US-AUROBINDO-AUR-APL-2019-058916

PATIENT
  Age: 36 Year
  Sex: Female
  Weight: 84 kg

DRUGS (2)
  1. FLECAINIDE ACETATE TABLETS USP 100MG [Suspect]
     Active Substance: FLECAINIDE ACETATE
     Dosage: UNK,10-15 TABLETS OF FLECAINIDE MISSING FROM THE BOTTLE
     Route: 048
     Dates: start: 20181217
  2. FLECAINIDE ACETATE TABLETS USP 100MG [Suspect]
     Active Substance: FLECAINIDE ACETATE
     Indication: ATRIAL TACHYCARDIA
     Dosage: UNK UNK, TWO TIMES A DAY
     Route: 048
     Dates: start: 20181120

REACTIONS (7)
  - Cardiac arrest [Fatal]
  - Hypotension [Not Recovered/Not Resolved]
  - Brain injury [Fatal]
  - Arrhythmia [Recovering/Resolving]
  - Overdose [Fatal]
  - Toxicity to various agents [Unknown]
  - Bradycardia [Recovering/Resolving]

NARRATIVE: CASE EVENT DATE: 20181217
